FAERS Safety Report 7337803-X (Version None)
Quarter: 2011Q1

REPORT INFORMATION
  Report Type: 
  Country: None (occurrence: None)
  Receive Date: 20110308
  Receipt Date: 20110228
  Transmission Date: 20110831
  Serious: Yes (Hospitalization, Other)
  Sender: FDA-Public Use
  Company Number: CA-ROCHE-724038

PATIENT
  Sex: Female

DRUGS (9)
  1. FOLIC ACID [Concomitant]
  2. AVASTIN [Suspect]
     Dosage: DOSE REDUCED
     Route: 042
     Dates: end: 20110124
  3. CRESTOR [Concomitant]
  4. VITAMIN D [Concomitant]
  5. AVASTIN [Suspect]
     Indication: GLIOBLASTOMA MULTIFORME
     Dosage: DOSE: 672 MG
     Route: 042
     Dates: start: 20100625, end: 20110113
  6. DEXAMETHASONE [Concomitant]
     Dates: start: 20101004
  7. KEPPRA [Concomitant]
  8. RANITIDINE [Concomitant]
  9. DEXAMETHASONE [Concomitant]
     Dates: start: 20100601

REACTIONS (7)
  - NEOPLASM MALIGNANT [None]
  - WHITE BLOOD CELL COUNT DECREASED [None]
  - ASTHENIA [None]
  - THROMBOCYTOPENIA [None]
  - ORAL CANDIDIASIS [None]
  - HAEMOGLOBIN DECREASED [None]
  - GASTROINTESTINAL ULCER [None]
